FAERS Safety Report 22602886 (Version 1)
Quarter: 2023Q2

REPORT INFORMATION
  Report Type: Report from Study
  Country: US (occurrence: US)
  Receive Date: 20230615
  Receipt Date: 20230615
  Transmission Date: 20230721
  Serious: Yes (Hospitalization)
  Sender: FDA-Public Use
  Company Number: US-BIOGEN-2023BI01209570

PATIENT
  Sex: Female

DRUGS (1)
  1. TYSABRI [Suspect]
     Active Substance: NATALIZUMAB
     Indication: Multiple sclerosis
     Route: 050
     Dates: start: 20150311

REACTIONS (9)
  - Sinusitis [Recovered/Resolved]
  - Gait disturbance [Recovered/Resolved]
  - Bradykinesia [Recovered/Resolved]
  - Dysstasia [Recovered/Resolved]
  - Pyrexia [Recovered/Resolved]
  - Urinary tract infection [Recovered/Resolved]
  - Dehydration [Unknown]
  - Oropharyngeal pain [Unknown]
  - Body temperature increased [Unknown]
